FAERS Safety Report 5682474-1 (Version None)
Quarter: 2008Q1

REPORT INFORMATION
  Report Type: 
  Country: None (occurrence: None)
  Receive Date: 20080326
  Receipt Date: 20080326
  Transmission Date: 20080703
  Serious: No
  Sender: FDA-Public Use
  Company Number: None

PATIENT
  Age: 51 Year
  Sex: Female
  Weight: 61 kg

DRUGS (14)
  1. VANCOMYCIN [Suspect]
     Indication: NECROTISING FASCIITIS
     Dosage: 1 GM IV Q 12 HR
     Route: 042
     Dates: start: 20080103, end: 20080118
  2. VANCOMYCIN [Suspect]
     Indication: STAPHYLOCOCCAL INFECTION
     Dosage: 1 GM IV Q 12 HR
     Route: 042
     Dates: start: 20080103, end: 20080118
  3. VIT C [Concomitant]
  4. LOMOTIL [Concomitant]
  5. FUROSEMIDE [Concomitant]
  6. INSULIN [Concomitant]
  7. LACTOBACILLUS [Concomitant]
  8. LEVOFLOXACIN [Concomitant]
  9. METOPROLOL TARTRATE [Concomitant]
  10. TEMAZEPAM [Concomitant]
  11. ZINC SULFATE [Concomitant]
  12. HEPARIN [Concomitant]
  13. TEN [Concomitant]
  14. INSULIN [Concomitant]

REACTIONS (2)
  - BLOOD CREATININE INCREASED [None]
  - HAEMODIALYSIS [None]
